FAERS Safety Report 8583710-4 (Version None)
Quarter: 2012Q3

REPORT INFORMATION
  Report Type: 
  Country: None (occurrence: None)
  Receive Date: 20120809
  Receipt Date: 20120723
  Transmission Date: 20120928
  Serious: Yes (Death, Hospitalization, Other)
  Sender: FDA-Public Use
  Company Number: DE-009507513-2012SP000153

PATIENT

DRUGS (9)
  1. ENOXAPARIN SODIUM [Concomitant]
     Indication: PORTAL VEIN THROMBOSIS
     Dosage: 0.4 ML, QD
     Dates: start: 20120101
  2. PEGINTERFERON ALFA-2B [Suspect]
     Indication: HEPATITIS C
     Dosage: 105 MICROGRAM, QW
     Route: 058
     Dates: start: 20110318, end: 20120217
  3. PANTOPRAZOLE [Concomitant]
     Indication: PROPHYLAXIS
     Dosage: 40 MG, BID
     Dates: start: 20101101
  4. HEPA-MERZ [Concomitant]
     Indication: HEPATIC ENCEPHALOPATHY
     Dosage: 6 G, TID
     Dates: start: 20120701, end: 20120712
  5. DIPYRONE INJ [Concomitant]
     Indication: PAIN
     Dosage: DROPS; INDICATION: PAIN/FEVER
     Dates: start: 20120208
  6. RIBAVIRIN [Suspect]
     Indication: HEPATITIS C
     Dosage: 1000 MG, QD
     Route: 048
     Dates: start: 20110318, end: 20111231
  7. RIBAVIRIN [Suspect]
     Dosage: 1000 MG, QD
     Route: 048
     Dates: start: 20120103, end: 20120217
  8. HUMATIN [Concomitant]
     Indication: HEPATIC ENCEPHALOPATHY
     Dosage: 1 G, TID
     Dates: start: 20120701, end: 20120712
  9. FERROUS SULFATE TAB [Suspect]
     Indication: IRON DEFICIENCY
     Dosage: 100 MG, QD
     Route: 048
     Dates: start: 20101101

REACTIONS (8)
  - BILE DUCT STONE [None]
  - BILE DUCT STENT INSERTION [None]
  - CHOLECYSTITIS [None]
  - HEPATIC CIRRHOSIS [None]
  - MALLORY-WEISS SYNDROME [None]
  - HEPATIC NEOPLASM MALIGNANT [None]
  - PORTAL VEIN THROMBOSIS [None]
  - PERITONITIS BACTERIAL [None]
